FAERS Safety Report 15006805 (Version 2)
Quarter: 2018Q2

REPORT INFORMATION
  Report Type: Report from Study
  Country: US (occurrence: US)
  Receive Date: 20180613
  Receipt Date: 20180614
  Transmission Date: 20180711
  Serious: No
  Sender: FDA-Public Use
  Company Number: US-US WORLDMEDS, LLC-USW201802-000297

PATIENT
  Sex: Male

DRUGS (4)
  1. APOKYN [Suspect]
     Active Substance: APOMORPHINE HYDROCHLORIDE
     Indication: PARKINSON^S DISEASE
     Route: 058
  2. LEVODOPA/CARBIDOPA [Concomitant]
     Active Substance: CARBIDOPA\LEVODOPA
  3. ESMOLOL [Concomitant]
     Active Substance: ESMOLOL HYDROCHLORIDE
  4. NEUPRO [Concomitant]
     Active Substance: ROTIGOTINE

REACTIONS (1)
  - Abdominal discomfort [Recovered/Resolved]
